FAERS Safety Report 7813949-4 (Version None)
Quarter: 2011Q4

REPORT INFORMATION
  Report Type: 
  Country: None (occurrence: None)
  Receive Date: 20111014
  Receipt Date: 20111012
  Transmission Date: 20120403
  Serious: Yes (Hospitalization)
  Sender: FDA-Public Use
  Company Number: AU-PFIZER INC-2011242908

PATIENT
  Age: 23 Year
  Sex: Female

DRUGS (1)
  1. VARENICLINE TARTRATE [Suspect]
     Indication: SMOKING CESSATION THERAPY
     Dosage: UNK

REACTIONS (6)
  - HAEMATEMESIS [None]
  - EPISTAXIS [None]
  - ABDOMINAL PAIN [None]
  - GASTRIC HAEMORRHAGE [None]
  - GINGIVAL BLEEDING [None]
  - GINGIVITIS [None]
